FAERS Safety Report 7510657-4 (Version None)
Quarter: 2011Q2

REPORT INFORMATION
  Report Type: 
  Country: None (occurrence: None)
  Receive Date: 20110530
  Receipt Date: 20110516
  Transmission Date: 20111010
  Serious: Yes (Hospitalization, Other)
  Sender: FDA-Public Use
  Company Number: US-RANBAXY-2011RR-44809

PATIENT
  Sex: Female

DRUGS (4)
  1. CIPROFLOXACIN [Suspect]
     Indication: SINUSITIS
     Dosage: UNK
  2. CIPROFLOXACIN [Suspect]
     Indication: PNEUMONIA
  3. CIPROFLOXACIN [Suspect]
     Indication: BRONCHITIS
  4. LEVAQUIN [Suspect]
     Indication: SINUSITIS
     Dosage: UNK
     Route: 048
     Dates: start: 19991119, end: 20080811

REACTIONS (6)
  - DEPRESSION [None]
  - MEMORY IMPAIRMENT [None]
  - JOINT INJURY [None]
  - POST-TRAUMATIC STRESS DISORDER [None]
  - ROTATOR CUFF SYNDROME [None]
  - ANXIETY [None]
